FAERS Safety Report 8521503-4 (Version None)
Quarter: 2012Q3

REPORT INFORMATION
  Report Type: 
  Country: None (occurrence: None)
  Receive Date: 20120719
  Receipt Date: 20120717
  Transmission Date: 20120928
  Serious: Yes (Other)
  Sender: FDA-Public Use
  Company Number: US-BAYER-2012-072003

PATIENT
  Sex: Female

DRUGS (2)
  1. CIPROFLOXACIN HCL [Suspect]
     Route: 042
  2. CIPROFLOXACIN HCL [Suspect]
     Indication: URINARY TRACT INFECTION
     Route: 048

REACTIONS (3)
  - OEDEMA PERIPHERAL [None]
  - TENDON RUPTURE [None]
  - PAIN IN EXTREMITY [None]
